FAERS Safety Report 16710464 (Version 10)
Quarter: 2020Q1

REPORT INFORMATION
  Report Type: Spontaneous
  Country: US (occurrence: US)
  Receive Date: 20190816
  Receipt Date: 20200313
  Transmission Date: 20200409
  Serious: Yes (Other)
  Sender: FDA-Public Use
  Company Number: US-PFIZER INC-2019347936

PATIENT
  Age: 74 Year
  Sex: Female

DRUGS (1)
  1. IBRANCE [Suspect]
     Active Substance: PALBOCICLIB
     Indication: BREAST CANCER FEMALE
     Dosage: 100 MG, UNK

REACTIONS (12)
  - Limb discomfort [Unknown]
  - Memory impairment [Unknown]
  - Nasopharyngitis [Unknown]
  - Stomatitis [Unknown]
  - Pneumonia [Unknown]
  - Decreased appetite [Unknown]
  - Glossodynia [Unknown]
  - Pain in extremity [Unknown]
  - Gait disturbance [Unknown]
  - Pain [Unknown]
  - Mental disorder [Unknown]
  - Peripheral swelling [Unknown]
